FAERS Safety Report 7248764-6 (Version None)
Quarter: 2011Q1

REPORT INFORMATION
  Report Type: 
  Country: None (occurrence: None)
  Receive Date: 20110128
  Receipt Date: 20110119
  Transmission Date: 20110831
  Serious: Yes (Death)
  Sender: FDA-Public Use
  Company Number: DE-BRACCO-000772

PATIENT
  Sex: Female
  Weight: 60 kg

DRUGS (12)
  1. SIMVA [Concomitant]
  2. LEVOTHYROXINE SODIUM [Concomitant]
     Dosage: TAKEN IN THE MORNING
     Dates: start: 20101001
  3. ASPIRIN [Concomitant]
     Dosage: TAKEN IN THE MORNING
     Dates: start: 20101001
  4. RAMIPRIL [Concomitant]
     Dosage: TAKEN IN THE MORNING
  5. SOLUTRAST [Suspect]
     Indication: NON-HODGKIN'S LYMPHOMA
     Dates: start: 20101220, end: 20101220
  6. BERLOSIN [Concomitant]
  7. AZOPT [Concomitant]
  8. BELOC ZOK [Concomitant]
     Dosage: BELOK ZOK MITE, TAKEN IN THE MORNING
     Dates: start: 20101001
  9. DELIX PLUS [Concomitant]
     Dosage: TAKEN IN THE MORNING
     Dates: start: 20101001
  10. SOLUTRAST [Suspect]
     Indication: COMPUTERISED TOMOGRAM
     Dates: start: 20101220, end: 20101220
  11. PLAVIX [Concomitant]
     Dosage: TAKEN IN THE MORNING
     Dates: start: 20101001
  12. TIMONIL [Concomitant]
     Dosage: TAKEN IN THE EVENING
     Dates: start: 20101001

REACTIONS (2)
  - ACUTE MYOCARDIAL INFARCTION [None]
  - CARDIAC FAILURE ACUTE [None]
